FAERS Safety Report 8491925 (Version 3)
Quarter: 2012Q4

REPORT INFORMATION
  Report Type: 
  Country: US (occurrence: US)
  Receive Date: 20120321
  Receipt Date: 20121012
  Transmission Date: 20130627
  Serious: Yes (Other)
  Sender: FDA-Public Use
  Company Number: PHHY2010US18858

PATIENT
  Age: 59 Year
  Sex: Female

DRUGS (7)
  1. ILARIS [Suspect]
     Indication: FAMILIAL COLD AUTOINFLAMMATORY SYNDROME
     Dosage: 2 X 150 mg every 8 weeks
     Route: 058
     Dates: start: 200810
  2. ILARIS [Suspect]
     Indication: CRYOPYRIN ASSOCIATED PERIODIC SYNDROME
     Dosage: 180 mg vial
     Dates: start: 20100128
  3. HYDROCHLOROTHIAZIDE [Concomitant]
  4. PRAVASTATIN [Concomitant]
     Dosage: 40 mg 1 x day
  5. HYDROCODONE [Concomitant]
     Dosage: 7.5 mg (as needed)
  6. ALLEGRA [Concomitant]
  7. NEXIUM [Concomitant]

REACTIONS (13)
  - Asthenia [Unknown]
  - Malaise [Unknown]
  - Drug dose omission [Unknown]
  - Incorrect dose administered [Recovered/Resolved]
  - Gait disturbance [Unknown]
  - Joint swelling [Unknown]
  - Dyskinesia [Unknown]
  - Chills [Unknown]
  - Pyrexia [Unknown]
  - Urticaria [Unknown]
  - Pruritus generalised [Unknown]
  - Pain [Unknown]
  - Influenza [Unknown]
